FAERS Safety Report 7764561-7 (Version None)
Quarter: 2011Q3

REPORT INFORMATION
  Report Type: 
  Country: None (occurrence: None)
  Receive Date: 20110921
  Receipt Date: 20110915
  Transmission Date: 20111222
  Serious: Yes (Death, Other)
  Sender: FDA-Public Use
  Company Number: DK-PFIZER INC-2011219116

PATIENT
  Age: 50 Year
  Sex: Male

DRUGS (3)
  1. OXAZEPAM [Concomitant]
     Indication: ANXIETY
  2. HALCION [Concomitant]
     Indication: ANXIETY
  3. EFFEXOR [Suspect]
     Indication: DEPRESSION
     Dosage: 75 MG, 1X/DAY
     Route: 048
     Dates: start: 20110317

REACTIONS (2)
  - PANIC ATTACK [None]
  - COMPLETED SUICIDE [None]
